FAERS Safety Report 5347352-6 (Version None)
Quarter: 2007Q2

REPORT INFORMATION
  Report Type: 
  Country: None (occurrence: None)
  Receive Date: 20070507
  Receipt Date: 20070206
  Transmission Date: 20071010
  Serious: Yes (Hospitalization, Other)
  Sender: FDA-Public Use
  Company Number: 62975

PATIENT
  Age: 58 Year
  Sex: Female

DRUGS (1)
  1. ADRIAMYCIN (DOXORUBICIN) INJ. USP 50MG/25ML - BEDFORD LABS, INC. [Suspect]
     Indication: BREAST CANCER
     Dosage: 108MG
     Dates: start: 20061006, end: 20061121

REACTIONS (1)
  - PAIN [None]
